FAERS Safety Report 7260236-1 (Version None)
Quarter: 2011Q1

REPORT INFORMATION
  Report Type: 
  Country: None (occurrence: None)
  Receive Date: 20110130
  Receipt Date: 20100908
  Transmission Date: 20110831
  Serious: No
  Sender: FDA-Public Use
  Company Number: US-ABBOTT-10P-163-0669942-00

PATIENT
  Age: 61 Year
  Sex: Female

DRUGS (13)
  1. OSTEOGUARD IRIFLOVONE [Concomitant]
     Indication: PRODUCT USED FOR UNKNOWN INDICATION
  2. BCE COMPLEX [Concomitant]
     Indication: PRODUCT USED FOR UNKNOWN INDICATION
  3. VITAMIN C AND D [Concomitant]
     Indication: PRODUCT USED FOR UNKNOWN INDICATION
  4. HUMIRA [Suspect]
     Indication: CROHN'S DISEASE
     Dates: start: 20100801
  5. PRASTERONE [Concomitant]
     Indication: PRODUCT USED FOR UNKNOWN INDICATION
  6. ESTRADIOL 0.2 MG COMPOUND WITH PREGESTERONE 50MG [Concomitant]
     Indication: HORMONE REPLACEMENT THERAPY
  7. LOVAZA [Concomitant]
     Indication: PRODUCT USED FOR UNKNOWN INDICATION
  8. BCQ [Concomitant]
     Indication: PRODUCT USED FOR UNKNOWN INDICATION
  9. ALENDRONATE SODIUM [Concomitant]
     Indication: OSTEOPENIA
  10. MULTI-VITAMIN [Concomitant]
     Indication: PRODUCT USED FOR UNKNOWN INDICATION
  11. KETOCON 2 PERCENT/ FULTICA .05 PERCENT CREAM [Concomitant]
     Indication: RASH
  12. ENZYME [Concomitant]
     Indication: PRODUCT USED FOR UNKNOWN INDICATION
  13. ADAPATACIN [Concomitant]
     Indication: PRODUCT USED FOR UNKNOWN INDICATION

REACTIONS (2)
  - INJECTION SITE RASH [None]
  - RASH PAPULAR [None]
